FAERS Safety Report 12456990 (Version 1)
Quarter: 2016Q2

REPORT INFORMATION
  Report Type: Spontaneous
  Country: GB (occurrence: GB)
  Receive Date: 20160610
  Receipt Date: 20160610
  Transmission Date: 20160815
  Serious: Yes (Hospitalization)
  Sender: FDA-Public Use
  Company Number: GB-WATSON-2016-11584

PATIENT
  Age: 27 Year
  Sex: Female
  Weight: 59.87 kg

DRUGS (1)
  1. CHLORPHENAMINE (UNKNOWN) [Suspect]
     Active Substance: CHLORPHENIRAMINE MALEATE
     Indication: EYELID OEDEMA
     Dosage: UNK
     Route: 048
     Dates: start: 20160507, end: 20160519

REACTIONS (2)
  - Overdose [Unknown]
  - Urinary retention [Recovered/Resolved with Sequelae]

NARRATIVE: CASE EVENT DATE: 20160509
